FAERS Safety Report 9492938 (Version 5)
Quarter: 2013Q4

REPORT INFORMATION
  Report Type: Report from Study
  Country: DE (occurrence: DE)
  Receive Date: 20130902
  Receipt Date: 20131120
  Transmission Date: 20140711
  Serious: Yes (Hospitalization)
  Sender: FDA-Public Use
  Company Number: DE-AMGEN-DEUCT2012056475

PATIENT
  Age: 73 Year
  Sex: Female
  Weight: 51 kg

DRUGS (19)
  1. ETANERCEPT [Suspect]
     Indication: RHEUMATOID ARTHRITIS
     Dosage: 50 MG, QWK
     Route: 065
     Dates: start: 20110422, end: 20111212
  2. ETANERCEPT [Suspect]
     Dosage: 25 MG, 2 TIMES/WK
     Route: 065
     Dates: start: 20111213
  3. ETANERCEPT [Suspect]
     Dosage: 25 MG, QWK
     Route: 065
     Dates: start: 20120320
  4. CALCICAL                           /07357001/ [Concomitant]
     Indication: OSTEOPOROSIS
     Dosage: 1 DF, 2X/DAY
     Route: 048
     Dates: start: 20100531
  5. METIZOL                            /00022901/ [Concomitant]
     Dosage: 2.5 MG, 1X/DAY
  6. SIMVABETA [Concomitant]
     Dosage: 20 MG, 1X/DAY
  7. PROVAS                             /00641902/ [Concomitant]
     Indication: HYPERTENSION
     Dosage: 160 MG, 1X/DAY
  8. ACTONEL [Concomitant]
     Indication: OSTEOPOROSIS
     Dosage: 35 MG, WEEKLY
  9. SYMBICORT [Concomitant]
     Indication: ALVEOLITIS
     Dosage: UNK
  10. NOVORAPID [Concomitant]
     Indication: DIABETES MELLITUS
     Dosage: 12-12-14 IU
  11. PROTAPHAN [Concomitant]
     Indication: DIABETES MELLITUS
     Dosage: 0-0-0-12-15 IU
  12. COTRIM [Concomitant]
     Indication: RHEUMATOID ARTHRITIS
     Dosage: UNK UNK 2 TIMES/WK
     Dates: end: 201201
  13. COTRIM [Concomitant]
     Dosage: UNK
  14. AZATHIOPRINE [Concomitant]
     Indication: RHEUMATOID ARTHRITIS
     Dosage: 50 MG, 1X/DAY
     Dates: start: 20110517
  15. AZATHIOPRINE [Concomitant]
     Dosage: 100 MG, 1X/DAY
     Dates: start: 201111
  16. PREDNISOLON                        /00016201/ [Concomitant]
     Indication: RHEUMATOID ARTHRITIS
     Dosage: 10 MG, 1X/DAY
  17. LODOTRA [Concomitant]
     Indication: RHEUMATOID ARTHRITIS
     Dosage: 2 MG, 1X/DAY
  18. NAPROXEN [Concomitant]
     Indication: RHEUMATOID ARTHRITIS
     Dosage: 500 MG, 1X/DAY
  19. IBUPROFEN [Concomitant]
     Indication: RHEUMATOID ARTHRITIS
     Dosage: 200 MG, AS NEEDED
     Dates: start: 201112

REACTIONS (2)
  - Alveolitis allergic [Not Recovered/Not Resolved]
  - Pneumonia [Recovering/Resolving]
